FAERS Safety Report 7116833-7 (Version None)
Quarter: 2010Q4

REPORT INFORMATION
  Report Type: 
  Country: None (occurrence: None)
  Receive Date: 20101122
  Receipt Date: 20101109
  Transmission Date: 20110411
  Serious: Yes (Other)
  Sender: FDA-Public Use
  Company Number: BR-VALEANT-2010VX001945

PATIENT
  Age: 64 Year
  Sex: Female

DRUGS (2)
  1. TIMOPTIC-XE [Suspect]
     Indication: GLAUCOMA
     Route: 047
     Dates: start: 20101107, end: 20101107
  2. TIMOPTIC [Suspect]
     Indication: GLAUCOMA
     Route: 047
     Dates: end: 20101106

REACTIONS (2)
  - BLINDNESS TRANSIENT [None]
  - DRUG DISPENSING ERROR [None]
